FAERS Safety Report 5456835-X (Version None)
Quarter: 2007Q3

REPORT INFORMATION
  Report Type: 
  Country: None (occurrence: None)
  Receive Date: 20070918
  Receipt Date: 20070228
  Transmission Date: 20080115
  Serious: Yes (Other)
  Sender: FDA-Public Use
  Company Number: US-ASTRAZENECA-2006UW26492

PATIENT
  Sex: Male
  Weight: 113.6 kg

DRUGS (6)
  1. SEROQUEL [Suspect]
     Route: 048
     Dates: end: 20050801
  2. ZYPREXA [Suspect]
     Dates: start: 20010101, end: 20040101
  3. ABILIFY [Concomitant]
  4. CLOZARIL [Concomitant]
  5. NAVANE [Concomitant]
  6. RISPERDAL [Concomitant]

REACTIONS (2)
  - DIABETES MELLITUS [None]
  - PANCREATITIS [None]
